FAERS Safety Report 8675031 (Version 2)
Quarter: 2013Q3

REPORT INFORMATION
  Report Type: Report from Study
  Country: US (occurrence: US)
  Receive Date: 20120720
  Receipt Date: 20130708
  Transmission Date: 20140515
  Serious: Yes (Hospitalization)
  Sender: FDA-Public Use
  Company Number: US-ELI_LILLY_AND_COMPANY-US201207003677

PATIENT
  Sex: Female

DRUGS (19)
  1. TERIPARATIDE [Suspect]
     Indication: OSTEOPOROSIS
     Dosage: 20 UG, QD
     Dates: start: 201202
  2. TERIPARATIDE [Suspect]
     Dosage: 20 UG, QD
  3. LEXAPRO [Concomitant]
     Dosage: 10 MG, EACH MORNING
  4. LEXAPRO [Concomitant]
     Dosage: 10 MG, AT NIGHT
  5. VAGISIL [Concomitant]
  6. METHOTREXATE [Concomitant]
     Dosage: 2.5 MG, 3/W
  7. KLOR-CON [Concomitant]
     Dosage: 20/20 MEG TID
  8. MELOXICAM [Concomitant]
     Indication: RHEUMATOID ARTHRITIS
     Dosage: 7.5 MG, QD
  9. REMICADE [Concomitant]
     Indication: RHEUMATOID ARTHRITIS
     Dosage: 1/4 SOLUTION Q 8 WEEKS
     Route: 042
  10. REMICADE [Concomitant]
     Dosage: 1 BAD EVERY 2 MONTHS
     Route: 042
  11. LEUCOVORIN CALCIUM [Concomitant]
     Dosage: 2.5 MG, WEEKLY (1/W)
  12. PREDNISONE [Concomitant]
     Dosage: 4 MG, QD
  13. PRILOSEC [Concomitant]
     Indication: ULCER
  14. ADVAIR DISKUS [Concomitant]
     Dosage: 2 SPRAYS EACH MORNING
     Route: 055
  15. ADVAIR DISKUS [Concomitant]
     Dosage: 2 SPRAYS EACH EVENING
     Route: 055
  16. VYTORIN [Concomitant]
  17. CALCIUM [Concomitant]
  18. PLAVIX [Concomitant]
     Dosage: 75 MG, UNK
  19. TOPROL [Concomitant]
     Dosage: 25 MG, QD

REACTIONS (2)
  - Device failure [Unknown]
  - Pain [Unknown]
